FAERS Safety Report 23484911 (Version 1)
Quarter: 2024Q1

REPORT INFORMATION
  Report Type: Spontaneous
  Country: IT (occurrence: IT)
  Receive Date: 20240206
  Receipt Date: 20240206
  Transmission Date: 20240410
  Serious: Yes (Hospitalization, Other)
  Sender: FDA-Public Use
  Company Number: IT-MINISAL02-966659

PATIENT
  Age: 50 Year
  Sex: Female
  Weight: 61 kg

DRUGS (7)
  1. AZITHROMYCIN [Suspect]
     Active Substance: AZITHROMYCIN
     Indication: Pyrexia
     Dosage: 500 MILLIGRAM, ONCE A DAY
     Route: 048
     Dates: start: 20240102, end: 20240105
  2. ACETAMINOPHEN [Suspect]
     Active Substance: ACETAMINOPHEN
     Indication: Product used for unknown indication
     Dosage: 500 MILLIGRAM, DAILY (500 MG OR 1000 MG DAILY FOR 7 DAYS)
     Route: 048
     Dates: end: 20240106
  3. GENTAMICIN [Suspect]
     Active Substance: GENTAMICIN
     Indication: Herpes zoster
     Dosage: 2 DOSAGE FORM, ONCE A DAY (ONE APPLICATION FOR TWO DAYS)
     Route: 003
     Dates: start: 20231210, end: 20231230
  4. ACYCLOVIR [Suspect]
     Active Substance: ACYCLOVIR
     Indication: Herpes zoster
     Dosage: 3 DOSAGE FORM, ONCE A DAY
     Route: 003
     Dates: start: 20231210, end: 20231222
  5. BRIVUDINE [Suspect]
     Active Substance: BRIVUDINE
     Indication: Herpes zoster
     Dosage: 1 DOSAGE FORM, ONCE A DAY (1 T DAY FOR 7 DAYS)
     Route: 048
     Dates: start: 20231216, end: 20231222
  6. IBUPROFEN [Suspect]
     Active Substance: IBUPROFEN
     Indication: Product used for unknown indication
     Dosage: 400 MILLIGRAM, EVERY OTHER DAY (400 MG X 2 DAYS FOR APPROXIMATELY 15 DAYS)
     Route: 048
     Dates: start: 20231215, end: 20231231
  7. LYRICA [Suspect]
     Active Substance: PREGABALIN
     Indication: Neuropathy peripheral
     Dosage: 25 MILLIGRAM, EVERY 3 DAYS
     Route: 048
     Dates: start: 20231210, end: 20231230

REACTIONS (1)
  - Hepatitis acute [Recovering/Resolving]

NARRATIVE: CASE EVENT DATE: 20231225
